FAERS Safety Report 18079024 (Version 5)
Quarter: 2021Q3

REPORT INFORMATION
  Report Type: Spontaneous
  Country: US (occurrence: US)
  Receive Date: 20200728
  Receipt Date: 20210930
  Transmission Date: 20211014
  Serious: No
  Sender: FDA-Public Use
  Company Number: US-PFIZER INC-2020282065

PATIENT
  Age: 69 Year
  Sex: Female
  Weight: 83.46 kg

DRUGS (7)
  1. NARDIL [Suspect]
     Active Substance: PHENELZINE SULFATE
     Dosage: 15 MG, DAILY
     Dates: start: 1986
  2. LIPITOR [Concomitant]
     Active Substance: ATORVASTATIN CALCIUM
     Dosage: UNK
     Dates: end: 202103
  3. NARDIL [Suspect]
     Active Substance: PHENELZINE SULFATE
     Dosage: 2/DAY
  4. NARDIL [Suspect]
     Active Substance: PHENELZINE SULFATE
     Indication: ANXIETY
     Dosage: 4/DAY
  5. NARDIL [Suspect]
     Active Substance: PHENELZINE SULFATE
     Indication: DEPRESSION
     Dosage: 3/DAY
  6. NARDIL [Suspect]
     Active Substance: PHENELZINE SULFATE
     Dosage: 15 MG, ALTERNATE DAY (EVERY OTHER DAY)
     Route: 048
  7. XANAX [Concomitant]
     Active Substance: ALPRAZOLAM
     Indication: ANXIETY
     Dosage: UNK, 1X/DAY

REACTIONS (2)
  - Expired product administered [Unknown]
  - Intentional product misuse [Unknown]
